FAERS Safety Report 6470373-7 (Version None)
Quarter: 2009Q4

REPORT INFORMATION
  Report Type: 
  Country: None (occurrence: None)
  Receive Date: 20091203
  Receipt Date: 20091124
  Transmission Date: 20100525
  Serious: Yes (Hospitalization)
  Sender: FDA-Public Use
  Company Number: JP-PFIZER INC-2009290203

PATIENT
  Age: 66 Year
  Sex: Male
  Weight: 52 kg

DRUGS (10)
  1. SUNITINIB MALATE [Suspect]
     Indication: METASTATIC RENAL CELL CARCINOMA
     Dosage: 50 MG, 1X/DAY
     Route: 048
     Dates: start: 20081117, end: 20090225
  2. VOLTAREN [Concomitant]
     Route: 051
     Dates: start: 20081201, end: 20090329
  3. FLOMOX [Concomitant]
     Route: 048
     Dates: start: 20090209, end: 20090213
  4. MUCOSTA [Concomitant]
     Route: 048
     Dates: start: 20081215, end: 20090304
  5. THYRADIN S [Concomitant]
     Route: 048
     Dates: start: 20090223, end: 20090321
  6. BLOPRESS [Concomitant]
     Route: 048
     Dates: start: 20090223, end: 20090321
  7. ENSURE [Concomitant]
     Route: 048
     Dates: start: 20090309, end: 20090321
  8. GASTER [Concomitant]
     Route: 048
     Dates: end: 20090322
  9. SOLDEM 3A [Concomitant]
     Route: 042
     Dates: start: 20090320, end: 20090322
  10. ALBUMINAR [Concomitant]
     Route: 042
     Dates: start: 20090321, end: 20090323

REACTIONS (1)
  - CEREBRAL INFARCTION [None]
